FAERS Safety Report 23957759 (Version 1)
Quarter: 2024Q2

REPORT INFORMATION
  Report Type: Spontaneous
  Country: US (occurrence: None)
  Receive Date: 20240608
  Receipt Date: 20240608
  Transmission Date: 20240716
  Serious: Yes (Disabling)
  Sender: FDA-Public Use
  Company Number: None

PATIENT
  Age: 40 Year
  Sex: Female
  Weight: 65.25 kg

DRUGS (1)
  1. INVEGA [Suspect]
     Active Substance: PALIPERIDONE
     Indication: Drug therapy
     Dates: start: 20240605, end: 20240605

REACTIONS (21)
  - Victim of abuse [None]
  - Circumstance or information capable of leading to medication error [None]
  - Tremor [None]
  - Tremor [None]
  - Affect lability [None]
  - Confusional state [None]
  - Thinking abnormal [None]
  - Amnesia [None]
  - Hyperphagia [None]
  - Arthralgia [None]
  - Breast pain [None]
  - Myalgia [None]
  - Musculoskeletal stiffness [None]
  - Dyspnoea [None]
  - Photopsia [None]
  - Facial paralysis [None]
  - Monoplegia [None]
  - Crying [None]
  - Depression [None]
  - Agitation [None]
  - Brain fog [None]

NARRATIVE: CASE EVENT DATE: 20240608
